FAERS Safety Report 25906437 (Version 2)
Quarter: 2025Q4

REPORT INFORMATION
  Report Type: Report from Study
  Country: US (occurrence: US)
  Receive Date: 20251010
  Receipt Date: 20251208
  Transmission Date: 20260117
  Serious: Yes (Hospitalization)
  Sender: JAZZ
  Company Number: US-JAZZ PHARMACEUTICALS-2025-US-023190

PATIENT
  Age: 14 Year
  Sex: Male

DRUGS (2)
  1. EPIDIOLEX [Suspect]
     Active Substance: CANNABIDIOL
     Indication: Product used for unknown indication
     Dosage: 21.7 MILLIGRAM/KILOGRAM/DAY, BID
     Dates: start: 20250517
  2. EPIDIOLEX [Suspect]
     Active Substance: CANNABIDIOL
     Dosage: 20.2 MILLIGRAM/KILOGRAM/DAY, BID

REACTIONS (5)
  - Surgery [Unknown]
  - Seizure [Not Recovered/Not Resolved]
  - Seizure [Not Recovered/Not Resolved]
  - Partial seizures [Not Recovered/Not Resolved]
  - Therapeutic response unexpected [Unknown]

NARRATIVE: CASE EVENT DATE: 20250801
